FAERS Safety Report 5070043-6 (Version None)
Quarter: 2006Q3

REPORT INFORMATION
  Report Type: 
  Country: None (occurrence: None)
  Receive Date: 20060731
  Receipt Date: 20060716
  Transmission Date: 20061208
  Serious: Yes (Hospitalization, Other)
  Sender: FDA-Public Use
  Company Number: 2006087877

PATIENT
  Age: 76 Year
  Sex: Female

DRUGS (1)
  1. SUTENT [Suspect]
     Indication: RENAL CELL CARCINOMA STAGE UNSPECIFIED
     Dosage: 50  MG (50 MG, DAILY - INTERVAL: EVERY DAY), ORAL
     Route: 048
     Dates: start: 20060701

REACTIONS (6)
  - BLOOD PH INCREASED [None]
  - HYPOKALAEMIA [None]
  - HYPOMAGNESAEMIA [None]
  - RENAL IMPAIRMENT [None]
  - URINE OUTPUT DECREASED [None]
  - VOMITING [None]
